FAERS Safety Report 10391082 (Version 2)
Quarter: 2014Q3

REPORT INFORMATION
  Report Type: Spontaneous
  Country: US (occurrence: US)
  Receive Date: 20140818
  Receipt Date: 20140924
  Transmission Date: 20150326
  Serious: Yes (Hospitalization)
  Sender: FDA-Public Use
  Company Number: US-GLAXOSMITHKLINE-A1084573A

PATIENT
  Age: 85 Year
  Sex: Female

DRUGS (11)
  1. HEART MEDICATION [Concomitant]
     Active Substance: UNSPECIFIED INGREDIENT
  2. OXYGEN. [Concomitant]
     Active Substance: OXYGEN
  3. DETROL [Concomitant]
     Active Substance: TOLTERODINE TARTRATE
  4. PRILOSEC [Concomitant]
     Active Substance: OMEPRAZOLE MAGNESIUM
  5. ALBUTEROL/IPRATROPIUM [Concomitant]
     Active Substance: ALBUTEROL\IPRATROPIUM
  6. IPRATROPIUM BROMIDE. [Concomitant]
     Active Substance: IPRATROPIUM BROMIDE
  7. BLOOD PRESSURE MEDICATION [Concomitant]
     Active Substance: UNSPECIFIED INGREDIENT
  8. ADVAIR HFA [Suspect]
     Active Substance: FLUTICASONE PROPIONATE\SALMETEROL XINAFOATE
     Indication: EMPHYSEMA
     Dosage: 1PUFF TWICE PER DAY
     Route: 055
     Dates: start: 2005
  9. SPIRIVA [Concomitant]
     Active Substance: TIOTROPIUM BROMIDE MONOHYDRATE
  10. PROAIR HFA [Concomitant]
     Active Substance: ALBUTEROL SULFATE
  11. LIPITOR [Concomitant]
     Active Substance: ATORVASTATIN CALCIUM

REACTIONS (9)
  - Cardiac disorder [Unknown]
  - Throat cancer [Unknown]
  - Oesophageal carcinoma [Not Recovered/Not Resolved]
  - Anaemia [Unknown]
  - Radiotherapy [Unknown]
  - Nasopharyngitis [Unknown]
  - Dysphagia [Unknown]
  - Chemotherapy [Unknown]
  - Throat lesion [Unknown]

NARRATIVE: CASE EVENT DATE: 2012
